FAERS Safety Report 10413331 (Version 3)
Quarter: 2014Q3

REPORT INFORMATION
  Report Type: Spontaneous
  Country: US (occurrence: US)
  Receive Date: 20140827
  Receipt Date: 20140919
  Transmission Date: 20150326
  Serious: Yes (Hospitalization)
  Sender: FDA-Public Use
  Company Number: US-GLAXOSMITHKLINE-A0745220A

PATIENT
  Sex: Male
  Weight: 109.1 kg

DRUGS (16)
  1. NITROSTAT [Concomitant]
     Active Substance: NITROGLYCERIN
  2. UNSPECIFIED MEDICATION [Concomitant]
     Active Substance: UNSPECIFIED INGREDIENT
  3. BENAZEPRIL [Concomitant]
     Active Substance: BENAZEPRIL\BENAZEPRIL HYDROCHLORIDE
  4. AVANDIA [Suspect]
     Active Substance: ROSIGLITAZONE MALEATE
     Indication: TYPE 2 DIABETES MELLITUS
     Dosage: 4MG TWICE PER DAY
     Route: 048
     Dates: start: 20000609, end: 200501
  5. WARFARIN [Concomitant]
     Active Substance: WARFARIN
  6. ACIPHEX [Concomitant]
     Active Substance: RABEPRAZOLE SODIUM
  7. COUMADIN [Concomitant]
     Active Substance: WARFARIN SODIUM
  8. PRAVACHOL [Concomitant]
     Active Substance: PRAVASTATIN SODIUM
  9. METOPROLOL [Concomitant]
     Active Substance: METOPROLOL
  10. NORVASC [Concomitant]
     Active Substance: AMLODIPINE BESYLATE
  11. GLUCOPHAGE [Concomitant]
     Active Substance: METFORMIN HYDROCHLORIDE
  12. ZOCOR [Concomitant]
     Active Substance: SIMVASTATIN
  13. LISINOPRIL. [Concomitant]
     Active Substance: LISINOPRIL
  14. METFORMIN [Concomitant]
     Active Substance: METFORMIN HYDROCHLORIDE
  15. DIOVAN [Concomitant]
     Active Substance: VALSARTAN
  16. LASIX [Concomitant]
     Active Substance: FUROSEMIDE

REACTIONS (5)
  - Cardiac failure congestive [Unknown]
  - Coronary artery disease [Unknown]
  - Myocardial infarction [Unknown]
  - Cardiomyopathy [Unknown]
  - Myocardial ischaemia [Unknown]
